FAERS Safety Report 4327618-9 (Version None)
Quarter: 2004Q1

REPORT INFORMATION
  Report Type: 
  Country: None (occurrence: None)
  Receive Date: 20040331
  Receipt Date: 20040325
  Transmission Date: 20041129
  Serious: Yes (Hospitalization)
  Sender: FDA-Public Use
  Company Number: 200411273FR

PATIENT
  Age: 60 Year
  Sex: Male

DRUGS (5)
  1. TAXOTERE [Suspect]
     Indication: PANCREATIC CARCINOMA
     Dates: start: 20040210, end: 20040225
  2. VOGALENE [Suspect]
     Dates: start: 20040210, end: 20040225
  3. ZOPHREN [Suspect]
     Dates: start: 20040210, end: 20040225
  4. GEMZAR [Suspect]
     Dates: start: 20040210, end: 20040225
  5. MIDAZOLAM HCL [Concomitant]
     Dates: start: 20040213

REACTIONS (5)
  - ANXIETY [None]
  - ASTHENIA [None]
  - DRUG INEFFECTIVE [None]
  - HICCUPS [None]
  - INSOMNIA [None]
